FAERS Safety Report 12584214 (Version 2)
Quarter: 2016Q3

REPORT INFORMATION
  Report Type: Spontaneous
  Country: US (occurrence: US)
  Receive Date: 20160722
  Receipt Date: 20160805
  Transmission Date: 20161109
  Serious: Yes (Other)
  Sender: FDA-Public Use
  Company Number: US-GLAXOSMITHKLINE-US2016GSK104909

PATIENT
  Age: 63 Year
  Sex: Female
  Weight: 88 kg

DRUGS (15)
  1. REQUIP [Suspect]
     Active Substance: ROPINIROLE HYDROCHLORIDE
     Indication: RESTLESS LEGS SYNDROME
  2. LYRICA [Suspect]
     Active Substance: PREGABALIN
     Indication: NEURALGIA
  3. CLARITIN [Concomitant]
     Active Substance: LORATADINE
     Indication: MULTIPLE ALLERGIES
     Dosage: 10 MG, VA ( EVERY 2 WEEKS)
     Dates: start: 2008
  4. PRISTIQ EXTENDED-RELEASE [Suspect]
     Active Substance: DESVENLAFAXINE SUCCINATE
     Indication: MAJOR DEPRESSION
  5. PRISTIQ EXTENDED-RELEASE [Suspect]
     Active Substance: DESVENLAFAXINE SUCCINATE
     Indication: CRYING
     Dosage: 100 MG, QD
     Route: 048
     Dates: start: 201001
  6. DIAZEPAM. [Concomitant]
     Active Substance: DIAZEPAM
     Dosage: 5 MG, BID
     Route: 048
     Dates: start: 2011
  7. BACLOFEN. [Concomitant]
     Active Substance: BACLOFEN
     Indication: MUSCLE SPASMS
     Dosage: 20 MG, TID
     Dates: start: 201411
  8. BACLOFEN. [Concomitant]
     Active Substance: BACLOFEN
     Indication: PAIN
     Dosage: 20 MG, QD
  9. SUMATRIPTAN SUCCINATE. [Concomitant]
     Active Substance: SUMATRIPTAN SUCCINATE
     Indication: MIGRAINE
     Dosage: 1 OR 2 AS NEEDED, PRN
     Dates: start: 201409
  10. CLARITIN [Concomitant]
     Active Substance: LORATADINE
     Indication: ASTHMA
  11. BUPROPION HCL [Suspect]
     Active Substance: BUPROPION HYDROCHLORIDE
     Indication: ASTHENIA
     Dosage: 100 MG, QD
     Dates: start: 2009
  12. LYRICA [Suspect]
     Active Substance: PREGABALIN
     Indication: FIBROMYALGIA
     Dosage: 100 MG, QD
     Route: 048
     Dates: start: 201505
  13. METHYLPHENIDATE. [Concomitant]
     Active Substance: METHYLPHENIDATE
     Indication: DISTURBANCE IN ATTENTION
     Dosage: UNK
     Dates: start: 201406
  14. BUPROPION HCL [Suspect]
     Active Substance: BUPROPION HYDROCHLORIDE
     Indication: SOMNOLENCE
  15. WELLBUTRIN [Suspect]
     Active Substance: BUPROPION HYDROCHLORIDE
     Indication: DISTURBANCE IN ATTENTION

REACTIONS (27)
  - Somnolence [Unknown]
  - Foreign body [Unknown]
  - Dyspnoea [Recovering/Resolving]
  - Eye injury [Unknown]
  - Myalgia [Unknown]
  - Off label use [Unknown]
  - Brain injury [Recovering/Resolving]
  - Fall [Unknown]
  - Memory impairment [Unknown]
  - Eye irritation [Unknown]
  - Post concussion syndrome [Unknown]
  - Drug ineffective [Unknown]
  - Suicidal ideation [Unknown]
  - Swollen tongue [Not Recovered/Not Resolved]
  - Hallucination [Unknown]
  - Suicide attempt [Unknown]
  - Fibromyalgia [Unknown]
  - Logorrhoea [Unknown]
  - Panic attack [Unknown]
  - Cognitive disorder [Unknown]
  - Muscle contractions involuntary [Unknown]
  - Pharyngeal oedema [Not Recovered/Not Resolved]
  - Vision blurred [Unknown]
  - Anxiety [Unknown]
  - Unresponsive to stimuli [Recovered/Resolved]
  - Blood glucose decreased [Unknown]
  - Neuralgia [Unknown]

NARRATIVE: CASE EVENT DATE: 20130618
